FAERS Safety Report 25241220 (Version 2)
Quarter: 2025Q2

REPORT INFORMATION
  Report Type: Spontaneous
  Country: US (occurrence: US)
  Receive Date: 20250425
  Receipt Date: 20250505
  Transmission Date: 20250716
  Serious: Yes (Death, Other)
  Sender: PURDUE
  Company Number: US-PURDUE-USA-2025-0317032

PATIENT
  Age: 42 Year
  Sex: Male

DRUGS (3)
  1. DEXTROAMPHETAMINE SACCHARATE, AMPHETAMINE ASPARTATE, DEXTROAMPHETAMINE [Suspect]
     Active Substance: AMPHETAMINE ASPARTATE\AMPHETAMINE SULFATE\DEXTROAMPHETAMINE SACCHARATE\DEXTROAMPHETAMINE SULFATE
     Indication: Product used for unknown indication
     Route: 048
  2. DRONABINOL [Suspect]
     Active Substance: DRONABINOL
     Indication: Product used for unknown indication
     Route: 048
  3. METHAMPHETAMINE [Suspect]
     Active Substance: METHAMPHETAMINE
     Indication: Product used for unknown indication
     Route: 065

REACTIONS (16)
  - Gun shot wound [Fatal]
  - Drug abuse [Unknown]
  - Hallucination [Unknown]
  - Drug screen positive [Unknown]
  - Abnormal behaviour [Unknown]
  - Insomnia [Unknown]
  - Aggression [Unknown]
  - Physical assault [Unknown]
  - Agitation [Unknown]
  - Logorrhoea [Unknown]
  - Paranoia [Unknown]
  - Feeling abnormal [Unknown]
  - Hyperhidrosis [Unknown]
  - Affect lability [Unknown]
  - Mydriasis [Unknown]
  - Soliloquy [Unknown]

NARRATIVE: CASE EVENT DATE: 20220329
